FAERS Safety Report 25957887 (Version 1)
Quarter: 2025Q4

REPORT INFORMATION
  Report Type: Spontaneous
  Country: PR (occurrence: PR)
  Receive Date: 20251024
  Receipt Date: 20251024
  Transmission Date: 20260119
  Serious: Yes (Other)
  Sender: AMGEN
  Company Number: PR-AMGEN-PRISP2025209217

PATIENT
  Age: 67 Year
  Sex: Female

DRUGS (7)
  1. BEVACIZUMAB [Suspect]
     Active Substance: BEVACIZUMAB
     Indication: Adenocarcinoma metastatic
     Dosage: 1.25 MILLIGRAM/0.05 ML
  2. BEVACIZUMAB [Suspect]
     Active Substance: BEVACIZUMAB
     Dosage: 25 MILLIGRAM PER MILLILITRE, Q3WK, INTRAVENOUS (SYSTEMIC BEVACIZUMAB)
     Route: 040
  3. Neomycin B [Concomitant]
  4. DEXAMETHASONE [Concomitant]
     Active Substance: DEXAMETHASONE
  5. FLUOROMETHOLONE [Concomitant]
     Active Substance: FLUOROMETHOLONE
  6. LENVATINIB [Concomitant]
     Active Substance: LENVATINIB
  7. PEMBROLIZUMAB [Concomitant]
     Active Substance: PEMBROLIZUMAB

REACTIONS (3)
  - Adenocarcinoma metastatic [Unknown]
  - Ocular cancer metastatic [Unknown]
  - Off label use [Unknown]
